FAERS Safety Report 13966938 (Version 2)
Quarter: 2017Q3

REPORT INFORMATION
  Report Type: Spontaneous
  Country: NO (occurrence: NO)
  Receive Date: 20170914
  Receipt Date: 20170920
  Transmission Date: 20171128
  Serious: Yes (Other)
  Sender: FDA-Public Use
  Company Number: NO-CONCORDIA PHARMACEUTICALS INC.-GSH201709-005105

PATIENT

DRUGS (1)
  1. HYDROXYCHLOROQUINE [Suspect]
     Active Substance: HYDROXYCHLOROQUINE
     Indication: MIXED CONNECTIVE TISSUE DISEASE
     Route: 065

REACTIONS (2)
  - Retinal toxicity [Unknown]
  - Peripheral ischaemia [Unknown]
